FAERS Safety Report 9356571 (Version 1)
Quarter: 2013Q2

REPORT INFORMATION
  Report Type: Report from Study
  Country: JP (occurrence: JP)
  Receive Date: 20130619
  Receipt Date: 20130619
  Transmission Date: 20140414
  Serious: Yes (Hospitalization)
  Sender: FDA-Public Use
  Company Number: JP-GILEAD-2013-0077283

PATIENT
  Age: 60 Year
  Sex: Male

DRUGS (5)
  1. EMTRICITABINE/TENOFOVIR DISOPROXIL FUMARATE [Suspect]
     Indication: HIV INFECTION
     Dosage: 1 DF, QD
     Route: 048
     Dates: start: 20050824, end: 20120531
  2. KALETRA [Suspect]
     Indication: HIV INFECTION
     Dosage: 2 DF, QD
     Route: 048
     Dates: start: 20020206, end: 20120531
  3. STOCRIN [Suspect]
     Indication: HIV INFECTION
     Dosage: 600 MG, QD
     Route: 048
     Dates: start: 20020206, end: 20120531
  4. LOPEMIN                            /00384302/ [Concomitant]
  5. DIOVAN [Concomitant]
     Dosage: UNK
     Dates: start: 20100120, end: 20120521

REACTIONS (1)
  - Femur fracture [Recovering/Resolving]
